FAERS Safety Report 5069644-0 (Version None)
Quarter: 2006Q3

REPORT INFORMATION
  Report Type: 
  Country: None (occurrence: None)
  Receive Date: 20060803
  Receipt Date: 20060727
  Transmission Date: 20061208
  Serious: Yes (Hospitalization)
  Sender: FDA-Public Use
  Company Number: 2006AP03540

PATIENT
  Age: 954 Month
  Sex: Male
  Weight: 68 kg

DRUGS (12)
  1. CRESTOR [Suspect]
     Indication: HYPERCHOLESTEROLAEMIA
     Route: 048
     Dates: start: 20051126, end: 20060101
  2. AMLODIN [Concomitant]
     Indication: HYPERTENSION
     Route: 048
  3. DIOVAN [Concomitant]
     Indication: HYPERTENSION
     Route: 048
  4. ALLOPURINOL [Concomitant]
     Indication: HYPERURICAEMIA
     Route: 048
  5. MAGNESIUM OXIDE [Concomitant]
     Indication: CONSTIPATION
     Route: 048
  6. ASPIRIN [Concomitant]
     Indication: ACUTE CORONARY SYNDROME
     Route: 048
  7. CILOSLET [Concomitant]
     Indication: ACUTE CORONARY SYNDROME
     Route: 048
  8. SIGMART [Concomitant]
     Indication: ACUTE CORONARY SYNDROME
  9. INDERAL [Concomitant]
     Indication: HYPERTENSION
  10. EPADEL S [Concomitant]
     Indication: HYPERCHOLESTEROLAEMIA
     Route: 048
  11. TAKEPRON [Concomitant]
     Indication: GASTROINTESTINAL DISORDER
     Route: 048
  12. BASEN [Concomitant]
     Indication: DIABETES MELLITUS
     Route: 048

REACTIONS (2)
  - MYALGIA [None]
  - RHEUMATOID ARTHRITIS [None]
